FAERS Safety Report 7629257-0 (Version None)
Quarter: 2011Q3

REPORT INFORMATION
  Report Type: 
  Country: None (occurrence: None)
  Receive Date: 20110722
  Receipt Date: 20110719
  Transmission Date: 20111222
  Serious: Yes (Other)
  Sender: FDA-Public Use
  Company Number: US-PFIZER INC-2011130330

PATIENT
  Sex: Female
  Weight: 60 kg

DRUGS (2)
  1. PROMETRIUM [Concomitant]
     Dosage: UNK
  2. ESTRING [Suspect]
     Indication: MENOPAUSE
     Dosage: 2 MG, UNK
     Route: 067
     Dates: start: 20110529, end: 20110606

REACTIONS (9)
  - FATIGUE [None]
  - DISORIENTATION [None]
  - POOR QUALITY SLEEP [None]
  - HEADACHE [None]
  - DEPRESSED MOOD [None]
  - JUDGEMENT IMPAIRED [None]
  - VISION BLURRED [None]
  - MENTAL IMPAIRMENT [None]
  - MUSCULOSKELETAL STIFFNESS [None]
